FAERS Safety Report 5121094-4 (Version None)
Quarter: 2006Q4

REPORT INFORMATION
  Report Type: 
  Country: None (occurrence: None)
  Receive Date: 20061002
  Receipt Date: 20060926
  Transmission Date: 20070319
  Serious: Yes (Hospitalization)
  Sender: FDA-Public Use
  Company Number: 2006112589

PATIENT
  Age: 72 Year
  Sex: Female
  Weight: 61 kg

DRUGS (2)
  1. INHALED HUMAN INSULIN              (INHALED HUMAN INSULIN) [Suspect]
     Indication: DIABETES MELLITUS NON-INSULIN-DEPENDENT
     Dosage: 7 MG (3 IN 1 D), INHALATION
     Route: 055
     Dates: start: 20051122, end: 20060916
  2. ZOCOR [Concomitant]

REACTIONS (6)
  - DERMATITIS [None]
  - FATIGUE [None]
  - OEDEMA PERIPHERAL [None]
  - PRURITUS [None]
  - PYREXIA [None]
  - RASH PUSTULAR [None]
